FAERS Safety Report 5246834-5 (Version None)
Quarter: 2007Q1

REPORT INFORMATION
  Report Type: 
  Country: None (occurrence: None)
  Receive Date: 20070226
  Receipt Date: 20070212
  Transmission Date: 20070707
  Serious: Yes (Other)
  Sender: FDA-Public Use
  Company Number: US-ELI_LILLY_AND_COMPANY-US200702002919

PATIENT
  Sex: Male

DRUGS (2)
  1. CYMBALTA [Suspect]
     Dosage: 30 MG, UNK
     Dates: start: 20060721
  2. CYMBALTA [Suspect]
     Dosage: 60 MG, UNK
     Dates: end: 20061211

REACTIONS (3)
  - CEREBROVASCULAR ACCIDENT [None]
  - FATIGUE [None]
  - FEELING ABNORMAL [None]
